FAERS Safety Report 5680198-8 (Version None)
Quarter: 2008Q1

REPORT INFORMATION
  Report Type: 
  Country: None (occurrence: None)
  Receive Date: 20080326
  Receipt Date: 20080318
  Transmission Date: 20080703
  Serious: Yes (Death, Hospitalization, Other)
  Sender: FDA-Public Use
  Company Number: PHBS2008CA03595

PATIENT
  Age: 31 Year
  Sex: Male

DRUGS (6)
  1. TACROLIMUS [Suspect]
     Indication: RENAL TRANSPLANT
     Dosage: 3 MG/D
  2. MYCOPHENOLIC ACID [Suspect]
     Indication: RENAL TRANSPLANT
     Dosage: 720 MG, BID
     Route: 065
  3. PREDNISONE TAB [Suspect]
     Indication: RENAL TRANSPLANT
     Dosage: 22.5 MG/D
     Route: 065
  4. PREDNISONE TAB [Suspect]
     Dosage: 7.5 MG/D
  5. TELMISARTAN [Concomitant]
  6. CYCLOSPORINE [Suspect]
     Indication: RENAL TRANSPLANT
     Dosage: 150 MG, BID
     Route: 065

REACTIONS (35)
  - ACUTE RESPIRATORY FAILURE [None]
  - BRAIN MASS [None]
  - BRAIN OEDEMA [None]
  - BRAIN STEM SYNDROME [None]
  - CENTRAL NERVOUS SYSTEM LESION [None]
  - CULTURE URINE POSITIVE [None]
  - CYTOMEGALOVIRUS COLITIS [None]
  - DELUSION [None]
  - DIARRHOEA HAEMORRHAGIC [None]
  - DYSURIA [None]
  - ENDOTRACHEAL INTUBATION [None]
  - FUNGAL INFECTION [None]
  - FUNGAL TEST POSITIVE [None]
  - HAEMATURIA [None]
  - HALLUCINATION [None]
  - HYDROCEPHALUS [None]
  - HYPOXIA [None]
  - KIDNEY TRANSPLANT REJECTION [None]
  - LUNG DISORDER [None]
  - NAUSEA [None]
  - NEPHRITIS INTERSTITIAL [None]
  - NEPHROURETERECTOMY [None]
  - NEUROLOGICAL SYMPTOM [None]
  - OEDEMA PERIPHERAL [None]
  - PAIN IN EXTREMITY [None]
  - POSTURING [None]
  - PSEUDOMONAS INFECTION [None]
  - PUPIL FIXED [None]
  - PURULENT DISCHARGE [None]
  - PYREXIA [None]
  - RENAL DISORDER [None]
  - RENAL IMPAIRMENT [None]
  - TUBULOINTERSTITIAL NEPHRITIS [None]
  - VENTRICULAR DRAINAGE [None]
  - VOMITING [None]
